FAERS Safety Report 8407388 (Version 3)
Quarter: 2012Q4

REPORT INFORMATION
  Report Type: Report from Study
  Country: DE (occurrence: DE)
  Receive Date: 20120215
  Receipt Date: 20120928
  Transmission Date: 20130627
  Serious: Yes (Hospitalization, Other)
  Sender: FDA-Public Use
  Company Number: DE-ABBOTT-12P-062-0902238-00

PATIENT
  Age: 22 Year
  Sex: Male
  Weight: 56 kg

DRUGS (4)
  1. HUMIRA 40 MG/ 0.8 ML PRE-FILLED SYRINGE [Suspect]
     Indication: CROHN^S DISEASE
     Route: 058
     Dates: start: 20090924, end: 201204
  2. FOLIC ACID [Concomitant]
     Indication: CROHN^S DISEASE
     Dosage: In the morning
  3. IRON (FERRO SANOL DUODENAL) [Concomitant]
     Indication: PRODUCT USED FOR UNKNOWN INDICATION
     Dosage: One in the morning and one in the evening
  4. PANTOPRAZOLE [Concomitant]
     Indication: PRODUCT USED FOR UNKNOWN INDICATION
     Dosage: One in the morning and one in the evening

REACTIONS (4)
  - Intestinal stenosis [Recovered/Resolved]
  - Abdominal pain upper [Unknown]
  - Crohn^s disease [Recovered/Resolved]
  - Cholecystectomy [Recovered/Resolved]
